FAERS Safety Report 26183786 (Version 2)
Quarter: 2025Q4

REPORT INFORMATION
  Report Type: Spontaneous
  Country: US (occurrence: US)
  Receive Date: 20251221
  Receipt Date: 20251222
  Transmission Date: 20260119
  Serious: No
  Sender: ROCHE
  Company Number: US-ROCHE-10000460341

PATIENT
  Age: 42 Year
  Sex: Female
  Weight: 54.43 kg

DRUGS (1)
  1. TAMIFLU [Suspect]
     Active Substance: OSELTAMIVIR PHOSPHATE
     Indication: Influenza
     Dosage: PILL TOOK WITH FOOD
     Route: 048

REACTIONS (4)
  - Nausea [Unknown]
  - Vomiting [Recovered/Resolved]
  - Sinusitis [Not Recovered/Not Resolved]
  - Illness [Unknown]

NARRATIVE: CASE EVENT DATE: 20250101
